FAERS Safety Report 5193443-2 (Version None)
Quarter: 2006Q4

REPORT INFORMATION
  Report Type: 
  Country: None (occurrence: None)
  Receive Date: 20061228
  Receipt Date: 20060420
  Transmission Date: 20070319
  Serious: No
  Sender: FDA-Public Use
  Company Number: US-GLAXOSMITHKLINE-A0602649A

PATIENT
  Sex: Male

DRUGS (3)
  1. FLONASE [Suspect]
     Route: 045
  2. ALLEGRA [Concomitant]
  3. ALLERGY SHOTS [Concomitant]

REACTIONS (2)
  - AGEUSIA [None]
  - ANOSMIA [None]
